FAERS Safety Report 10004116 (Version 3)
Quarter: 2014Q3

REPORT INFORMATION
  Report Type: Spontaneous
  Country: FR (occurrence: FR)
  Receive Date: 20140312
  Receipt Date: 20140908
  Transmission Date: 20150326
  Serious: Yes (Hospitalization)
  Sender: FDA-Public Use
  Company Number: PHHY2014FR028542

PATIENT
  Age: 65 Year
  Sex: Male

DRUGS (23)
  1. COLCHICINE. [Suspect]
     Active Substance: COLCHICINE
     Indication: ARTHRITIS
     Dosage: 1 DF, QD
     Route: 048
     Dates: start: 201312, end: 20140215
  2. FLUIMUCIL [Suspect]
     Active Substance: ACETYLCYSTEINE
     Indication: COUGH
     Dosage: 1 DF, TID
     Route: 048
     Dates: start: 20140203, end: 20140208
  3. TRAMADOL [Concomitant]
     Active Substance: TRAMADOL
     Dosage: 50 MG, QD OR BID
  4. PYOSTACINE [Suspect]
     Active Substance: PRISTINAMYCIN
     Indication: PYREXIA
     Dosage: 1000 MG, TID
     Route: 048
     Dates: start: 20140203, end: 20140210
  5. HUMIRA [Suspect]
     Active Substance: ADALIMUMAB
     Indication: RHEUMATIC DISORDER
     Dosage: 40 MG, PER WEEK
     Route: 058
     Dates: end: 20140215
  6. MONOTILDIEM LP [Concomitant]
     Active Substance: DILTIAZEM HYDROCHLORIDE
     Dosage: 300 MG, QD
  7. PREDNISONE. [Concomitant]
     Active Substance: PREDNISONE
     Dosage: 15 MG, QD
  8. MUCOMYSTENDO [Concomitant]
     Dosage: UNK UKN, UNK
     Dates: start: 20140212
  9. COLCHICINE. [Suspect]
     Active Substance: COLCHICINE
     Indication: ARTHRALGIA
  10. LANTUS [Concomitant]
     Active Substance: INSULIN GLARGINE
     Dosage: 54 IU, QD
  11. NOVORAPID [Concomitant]
     Active Substance: INSULIN ASPART
     Dosage: UNK 12 TO 18 IU TID
  12. HUMIRA [Suspect]
     Active Substance: ADALIMUMAB
     Indication: PSORIASIS
  13. FUROSEMIDE. [Concomitant]
     Active Substance: FUROSEMIDE
     Dosage: 40 MG, QD
  14. RASILEZ [Suspect]
     Active Substance: ALISKIREN
     Indication: HYPERTENSION
     Dosage: 150 MG, QD
     Route: 048
     Dates: start: 201401, end: 20140217
  15. MALARONE [Suspect]
     Active Substance: ATOVAQUONE\PROGUANIL HYDROCHLORIDE
     Indication: PROPHYLACTIC CHEMOTHERAPY
     Dosage: 1 DF (250MG ATOR /100MG PROG), QD
     Route: 048
     Dates: start: 201401, end: 20140210
  16. INEXIUM//ESOMEPRAZOLE MAGNESIUM [Concomitant]
     Active Substance: ESOMEPRAZOLE MAGNESIUM
     Dosage: 40 MG, QD
  17. BECLOSPIN [Concomitant]
     Active Substance: BECLOMETHASONE DIPROPIONATE
     Dosage: UNK UKN, UNK
     Dates: start: 20140212
  18. METHOTREXATE [Suspect]
     Active Substance: METHOTREXATE
     Indication: PSORIASIS
  19. DAFALGAN [Concomitant]
     Active Substance: ACETAMINOPHEN
     Dosage: 1 G, EVERY 6 HOURS
  20. HYPERIUM [Concomitant]
     Active Substance: RILMENIDINE PHOSPHATE
     Dosage: 1 MG, BID
  21. AUGMENTIN [Concomitant]
     Active Substance: AMOXICILLIN\CLAVULANATE POTASSIUM
     Dosage: UNK UKN, UNK
     Dates: start: 20140212
  22. METHOTREXATE [Suspect]
     Active Substance: METHOTREXATE
     Indication: RHEUMATIC DISORDER
     Dosage: 20 MG, PER WEEK
     Route: 058
     Dates: start: 2006, end: 20140215
  23. PIVALONE [Suspect]
     Active Substance: TIXOCORTOL PIVALATE
     Indication: RHINITIS
     Dosage: 2 DF, 5QD
     Route: 045
     Dates: start: 20140203, end: 20140208

REACTIONS (2)
  - Thrombocytopenia [Recovered/Resolved]
  - Petechiae [Unknown]

NARRATIVE: CASE EVENT DATE: 20140210
